FAERS Safety Report 11751746 (Version 1)
Quarter: 2015Q4

REPORT INFORMATION
  Report Type: Spontaneous
  Country: CH (occurrence: CH)
  Receive Date: 20151118
  Receipt Date: 20151118
  Transmission Date: 20160304
  Serious: Yes (Other)
  Sender: FDA-Public Use
  Company Number: CH-ASTRAZENECA-2015SF09630

PATIENT
  Age: 0 Day
  Sex: Female

DRUGS (5)
  1. CITALOPRAM [Suspect]
     Active Substance: CITALOPRAM HYDROBROMIDE
     Indication: DEPRESSION
     Route: 064
     Dates: start: 2014
  2. QUETIAPINE FUMARATE. [Suspect]
     Active Substance: QUETIAPINE FUMARATE
     Route: 064
     Dates: start: 2014
  3. QUETIAPINE FUMARATE. [Suspect]
     Active Substance: QUETIAPINE FUMARATE
     Route: 064
  4. CITALOPRAM [Suspect]
     Active Substance: CITALOPRAM HYDROBROMIDE
     Indication: DEPRESSION
     Route: 064
     Dates: start: 2014
  5. TEMESTA [Suspect]
     Active Substance: LORAZEPAM
     Indication: DEPRESSION
     Route: 064
     Dates: start: 201407, end: 201412

REACTIONS (3)
  - Hypotonia neonatal [Recovered/Resolved]
  - Congenital hypothyroidism [Unknown]
  - Neonatal respiratory distress syndrome [Recovered/Resolved]

NARRATIVE: CASE EVENT DATE: 20150213
